FAERS Safety Report 7688313-1 (Version None)
Quarter: 2011Q3

REPORT INFORMATION
  Report Type: 
  Country: None (occurrence: None)
  Receive Date: 20110817
  Receipt Date: 20110811
  Transmission Date: 20111222
  Serious: Yes (Other)
  Sender: FDA-Public Use
  Company Number: US-PFIZER INC-2011185095

PATIENT
  Sex: Female
  Weight: 65.8 kg

DRUGS (3)
  1. PREMPRO [Suspect]
     Indication: HYPERHIDROSIS
  2. PREMPRO [Suspect]
     Indication: MENOPAUSAL SYMPTOMS
     Dosage: 0.3/1.5 MG, DAILY
     Route: 048
     Dates: start: 20090101
  3. PREMPRO [Suspect]
     Indication: MOOD SWINGS

REACTIONS (3)
  - THYROID DISORDER [None]
  - TYPE 2 DIABETES MELLITUS [None]
  - HYPERTENSION [None]
